FAERS Safety Report 7059954-X (Version None)
Quarter: 2010Q4

REPORT INFORMATION
  Report Type: 
  Country: None (occurrence: None)
  Receive Date: 20101025
  Receipt Date: 20101020
  Transmission Date: 20110411
  Serious: Yes (Death, Hospitalization)
  Sender: FDA-Public Use
  Company Number: US-SANOFI-AVENTIS-2010SA064485

PATIENT
  Age: 72 Year
  Sex: Female

DRUGS (8)
  1. TAXOTERE [Suspect]
     Indication: BREAST CANCER
     Route: 051
     Dates: start: 20100916, end: 20100916
  2. TAXOTERE [Suspect]
     Route: 051
     Dates: start: 20101007, end: 20101007
  3. CYTOXAN [Suspect]
     Indication: BREAST CANCER
     Route: 051
     Dates: start: 20100916, end: 20100916
  4. CYTOXAN [Suspect]
     Route: 051
     Dates: start: 20101007, end: 20101007
  5. ANTIEMETICS AND ANTINAUSEANTS [Concomitant]
  6. BUDESONIDE/FORMOTEROL [Concomitant]
  7. EYE DROPS [Concomitant]
  8. PREVACID [Concomitant]

REACTIONS (10)
  - BLOOD CREATININE INCREASED [None]
  - CHILLS [None]
  - COLITIS [None]
  - DIARRHOEA HAEMORRHAGIC [None]
  - LETHARGY [None]
  - MENTAL STATUS CHANGES [None]
  - METABOLIC ACIDOSIS [None]
  - PHOTOPHOBIA [None]
  - RENAL FAILURE [None]
  - RESPIRATORY FAILURE [None]
